FAERS Safety Report 4543920-X (Version None)
Quarter: 2005Q1

REPORT INFORMATION
  Report Type: 
  Country: None (occurrence: None)
  Receive Date: 20050103
  Receipt Date: 20040202
  Transmission Date: 20050727
  Serious: Yes (Hospitalization)
  Sender: FDA-Public Use
  Company Number: GXKR2004NL00560

PATIENT
  Age: 62 Year
  Sex: Female

DRUGS (2)
  1. OXAZEPAM [Suspect]
     Dosage: 30 MG
  2. PHENYTOIN (NGX) (PHENYTOIN) [Suspect]

REACTIONS (1)
  - TOXIC EPIDERMAL NECROLYSIS [None]
